FAERS Safety Report 17812377 (Version 1)
Quarter: 2020Q2

REPORT INFORMATION
  Report Type: Spontaneous
  Country: FR (occurrence: FR)
  Receive Date: 20200521
  Receipt Date: 20200521
  Transmission Date: 20200714
  Serious: Yes (Death, Other)
  Sender: FDA-Public Use
  Company Number: FR-PFIZER INC-2020200736

PATIENT
  Age: 82 Year
  Sex: Male
  Weight: 85 kg

DRUGS (7)
  1. ANTARENE [Suspect]
     Active Substance: IBUPROFEN SODIUM
     Indication: PAIN
     Dosage: UNK
     Route: 003
     Dates: start: 20191028, end: 20191103
  2. CODEINE [Concomitant]
     Active Substance: CODEINE
     Indication: PAIN
     Dosage: UNK
     Route: 048
  3. PIROXICAM. [Suspect]
     Active Substance: PIROXICAM
     Dosage: 20 MG, 1X/DAY
     Route: 048
     Dates: start: 20191001, end: 20191028
  4. VOLTARENE EMULGEL [Suspect]
     Active Substance: DICLOFENAC DIETHYLAMINE
     Indication: PAIN
     Dosage: UNK
     Route: 003
     Dates: start: 20191001, end: 20191028
  5. SOLUPRED [PREDNISOLONE METASULFOBENZOATE SODIUM] [Suspect]
     Active Substance: PREDNISOLONE SODIUM METAZOATE
     Indication: BACK PAIN
     Dosage: 20 MG, 1X/DAY
     Route: 048
     Dates: start: 20191028, end: 20191103
  6. SOLUPRED [PREDNISOLONE METASULFOBENZOATE SODIUM] [Suspect]
     Active Substance: PREDNISOLONE SODIUM METAZOATE
     Indication: BACK PAIN
  7. PARACETAMOL [Concomitant]
     Active Substance: ACETAMINOPHEN
     Indication: PAIN
     Dosage: UNK
     Route: 048

REACTIONS (2)
  - Spinal cord infection [Fatal]
  - Cellulitis [Fatal]

NARRATIVE: CASE EVENT DATE: 20191103
